FAERS Safety Report 12957802 (Version 3)
Quarter: 2016Q4

REPORT INFORMATION
  Report Type: Spontaneous
  Country: US (occurrence: US)
  Receive Date: 20161118
  Receipt Date: 20161221
  Transmission Date: 20170207
  Serious: Yes (Hospitalization, Other)
  Sender: FDA-Public Use
  Company Number: US-ALLERGAN-1676651US

PATIENT
  Age: 82 Year
  Sex: Female

DRUGS (3)
  1. COMBIGAN [Suspect]
     Active Substance: BRIMONIDINE TARTRATE\TIMOLOL MALEATE
     Indication: VITREOUS FLOATERS
     Dosage: 1 GTT, BID
     Route: 047
     Dates: start: 2013
  2. METFORMIN [Concomitant]
     Active Substance: METFORMIN HYDROCHLORIDE
     Indication: DIABETES MELLITUS
  3. COMBIGAN [Suspect]
     Active Substance: BRIMONIDINE TARTRATE\TIMOLOL MALEATE
     Indication: EYE OPERATION

REACTIONS (10)
  - Lower limb fracture [Recovered/Resolved]
  - Off label use [Unknown]
  - Back injury [Recovered/Resolved]
  - Device breakage [Recovered/Resolved]
  - Bone density abnormal [Not Recovered/Not Resolved]
  - Fall [Unknown]
  - Expired product administered [Unknown]
  - Hip fracture [Recovered/Resolved]
  - Multiple fractures [Recovered/Resolved]
  - Musculoskeletal pain [Unknown]

NARRATIVE: CASE EVENT DATE: 20151223
